FAERS Safety Report 6699473-3 (Version None)
Quarter: 2010Q2

REPORT INFORMATION
  Report Type: 
  Country: None (occurrence: None)
  Receive Date: 20100426
  Receipt Date: 20100421
  Transmission Date: 20101027
  Serious: Yes (Hospitalization)
  Sender: FDA-Public Use
  Company Number: 1000012816

PATIENT
  Age: 76 Year
  Sex: Female

DRUGS (6)
  1. LEXAPRO [Suspect]
     Indication: DEPRESSION
     Dosage: 10 MG (10 MG, 1 IN 1 D), ORAL
     Route: 048
     Dates: start: 20100309, end: 20100316
  2. INSULIN [Concomitant]
  3. LISINOPRIL [Concomitant]
  4. LASIX [Concomitant]
  5. TOPROL-XL [Concomitant]
  6. CARDIZEM [Concomitant]

REACTIONS (1)
  - ENCEPHALOPATHY [None]
